FAERS Safety Report 5305712-3 (Version None)
Quarter: 2007Q2

REPORT INFORMATION
  Report Type: 
  Country: None (occurrence: None)
  Receive Date: 20070416
  Receipt Date: 20070402
  Transmission Date: 20071010
  Serious: Yes (Death, Hospitalization)
  Sender: FDA-Public Use
  Company Number: TAP2006Q01219

PATIENT
  Age: 84 Year
  Sex: Male

DRUGS (7)
  1. LUPRON DEPOT-4 [Suspect]
     Indication: PROSTATE CANCER
     Dosage: 30 MG, 1 IN 4 M, INTRAMUSCULAR
     Route: 030
     Dates: start: 20060118, end: 20060510
  2. APO-SERTRALINE (SERTRALINE) [Concomitant]
  3. APO-OXAZEPAM (OXAZEPAM) [Concomitant]
  4. NOVASEN (ACETYLSALICYLIC ACID) [Concomitant]
  5. LESCOL [Concomitant]
  6. ARTHROTEC (ARTHROTEC /01182401/) [Concomitant]
  7. COMBIVENT (BREVA) [Concomitant]

REACTIONS (6)
  - ANKLE FRACTURE [None]
  - ANOREXIA [None]
  - BONE NEOPLASM MALIGNANT [None]
  - FALL [None]
  - MALIGNANT NEOPLASM PROGRESSION [None]
  - PROSTATE CANCER [None]
